FAERS Safety Report 9697896 (Version 3)
Quarter: 2014Q1

REPORT INFORMATION
  Report Type: Spontaneous
  Country: US (occurrence: US)
  Receive Date: 20131120
  Receipt Date: 20140207
  Transmission Date: 20141002
  Serious: Yes (Life-Threatening, Hospitalization, Other)
  Sender: FDA-Public Use
  Company Number: US-MERCK-1311USA008246

PATIENT
  Age: 72 Year
  Sex: Male

DRUGS (8)
  1. JANUVIA [Suspect]
     Indication: DIABETES MELLITUS
     Dosage: 100 MG, DAILY
     Route: 048
     Dates: start: 20131104, end: 20131107
  2. ENALAPRIL MALEATE [Concomitant]
     Dosage: UNK
  3. LASIX (FUROSEMIDE) [Concomitant]
     Dosage: UNK
  4. LANTUS [Concomitant]
     Dosage: UNK
  5. POTASSIUM CHLORIDE - USP [Concomitant]
     Dosage: UNK
  6. PROAIR (ALBUTEROL SULFATE) [Concomitant]
     Dosage: UNK
  7. GLIPIZIDE [Concomitant]
     Dosage: UNK
  8. ATENOLOL [Concomitant]
     Dosage: UNK

REACTIONS (2)
  - Lung neoplasm malignant [Recovered/Resolved]
  - Anaphylactic reaction [Recovered/Resolved]
